FAERS Safety Report 23920468 (Version 1)
Quarter: 2024Q2

REPORT INFORMATION
  Report Type: Report from Study
  Country: CO (occurrence: CO)
  Receive Date: 20240530
  Receipt Date: 20240530
  Transmission Date: 20240715
  Serious: Yes (Other)
  Sender: FDA-Public Use
  Company Number: CO-ELI_LILLY_AND_COMPANY-CO202405005728

PATIENT
  Age: 66 Year
  Sex: Male

DRUGS (9)
  1. TRULICITY [Suspect]
     Active Substance: DULAGLUTIDE
     Indication: Type 2 diabetes mellitus
     Dosage: 0.75 MG, WEEKLY (1/W)
     Route: 058
     Dates: start: 202404, end: 20240430
  2. TRULICITY [Suspect]
     Active Substance: DULAGLUTIDE
     Dosage: 1.5 MG, WEEKLY (1/W)
     Route: 058
  3. THYROXINE [Concomitant]
     Active Substance: LEVOTHYROXINE
     Indication: Thyroid disorder
     Dosage: 75 MG, UNKNOWN
  4. DAPAGLIFLOZIN [Concomitant]
     Active Substance: DAPAGLIFLOZIN
     Indication: Type 2 diabetes mellitus
     Dosage: UNK UNK, UNKNOWN
     Route: 065
  5. METFORMIN [Concomitant]
     Active Substance: METFORMIN HYDROCHLORIDE
     Indication: Type 2 diabetes mellitus
     Dosage: 1000 MG, BID
     Route: 065
  6. EMPAGLIFLOZIN [Concomitant]
     Active Substance: EMPAGLIFLOZIN
     Indication: Type 2 diabetes mellitus
     Dosage: 25 MG, DAILY
     Route: 065
  7. LEVOTHYROXINE [Concomitant]
     Active Substance: LEVOTHYROXINE\LEVOTHYROXINE SODIUM
     Indication: Thyroid disorder
     Dosage: 75 MG, UNKNOWN
     Route: 065
  8. ROSUVASTATIN [Concomitant]
     Active Substance: ROSUVASTATIN
     Indication: Blood triglycerides
     Dosage: 20 MG, BID
     Route: 065
  9. ROSUVASTATIN [Concomitant]
     Active Substance: ROSUVASTATIN
     Indication: Blood cholesterol

REACTIONS (12)
  - Syncope [Recovering/Resolving]
  - Blood glucose decreased [Recovering/Resolving]
  - General physical health deterioration [Recovering/Resolving]
  - Headache [Recovering/Resolving]
  - Feeding disorder [Recovering/Resolving]
  - Peripheral coldness [Recovering/Resolving]
  - Gastritis [Recovering/Resolving]
  - Diarrhoea [Recovering/Resolving]
  - Asthenia [Recovering/Resolving]
  - Vomiting [Recovering/Resolving]
  - Abdominal distension [Recovering/Resolving]
  - Nausea [Recovering/Resolving]

NARRATIVE: CASE EVENT DATE: 20240401
